FAERS Safety Report 7759993-7 (Version None)
Quarter: 2011Q3

REPORT INFORMATION
  Report Type: 
  Country: None (occurrence: None)
  Receive Date: 20110919
  Receipt Date: 20110909
  Transmission Date: 20111222
  Serious: Yes (Other)
  Sender: FDA-Public Use
  Company Number: TW-BRISTOL-MYERS SQUIBB COMPANY-16066524

PATIENT
  Age: 70 Year
  Sex: Female

DRUGS (2)
  1. MITOMYCIN [Suspect]
     Indication: RECTAL CANCER
     Dosage: ALSO ON 02NOV04-02NOV04:15MG 30NOV04-30NOV04:15MG 03DEC04-03DEC04:15MG. INJECTION
     Route: 065
     Dates: start: 20041102, end: 20041203
  2. FLUOROURACIL [Suspect]
     Indication: RECTAL CANCER
     Dosage: ALSO ON 02NOV04-05NOV04:1500MG 30NOV04-03DEC04:1500MG 03DEC04-06DEC04:1500MG INJECTION 250 KYOWA
     Route: 065
     Dates: start: 20041102, end: 20041206

REACTIONS (1)
  - ACUTE MYELOID LEUKAEMIA [None]
